FAERS Safety Report 5885798-8 (Version None)
Quarter: 2008Q3

REPORT INFORMATION
  Report Type: 
  Country: None (occurrence: None)
  Receive Date: 20080917
  Receipt Date: 20080908
  Transmission Date: 20090109
  Serious: Yes (Disabling)
  Sender: FDA-Public Use
  Company Number: JP-JNJFOC-20080703427

PATIENT
  Sex: Male

DRUGS (15)
  1. DOXORUBICIN HYDROCHLORIDE [Suspect]
     Route: 042
  2. DOXORUBICIN HYDROCHLORIDE [Suspect]
     Route: 042
  3. DOXORUBICIN HYDROCHLORIDE [Suspect]
     Route: 042
  4. DOXORUBICIN HYDROCHLORIDE [Suspect]
     Indication: KAPOSI'S SARCOMA
     Route: 042
  5. CELECOXIB [Suspect]
     Indication: ARTHRALGIA
     Route: 048
  6. ZIAGEN [Concomitant]
     Route: 048
  7. KALETRA [Concomitant]
     Route: 048
  8. EPIVIR [Concomitant]
     Route: 065
  9. CLARITHROMYCIN [Concomitant]
     Indication: MYCOBACTERIA TEST
     Route: 048
  10. ETHAMBUTOL HYDROCHLORIDE [Concomitant]
     Indication: MYCOBACTERIA TEST
     Route: 048
  11. RIFABUTIN [Concomitant]
     Indication: MYCOBACTERIA TEST
     Route: 065
  12. SULFADOXINE PYRIMETHAMINE [Concomitant]
     Indication: CEREBRAL TOXOPLASMOSIS
     Route: 065
  13. SULFADIAZINE [Concomitant]
     Indication: CEREBRAL TOXOPLASMOSIS
     Route: 065
  14. CALCIUM FOLINATE [Concomitant]
     Indication: CEREBRAL TOXOPLASMOSIS
     Route: 065
  15. ATOVAQUONE [Concomitant]
     Indication: CEREBRAL TOXOPLASMOSIS
     Route: 065

REACTIONS (1)
  - COLITIS [None]
